FAERS Safety Report 23534761 (Version 1)
Quarter: 2024Q1

REPORT INFORMATION
  Report Type: Spontaneous
  Country: ES (occurrence: ES)
  Receive Date: 20240217
  Receipt Date: 20240217
  Transmission Date: 20240410
  Serious: Yes (Other)
  Sender: FDA-Public Use
  Company Number: ES-UCBSA-2024007850

PATIENT
  Sex: Female
  Weight: 74 kg

DRUGS (5)
  1. BRIVIACT [Suspect]
     Active Substance: BRIVARACETAM
     Indication: Partial seizures
     Dosage: 75 MILLIGRAM, 2X/DAY (BID)
     Dates: start: 202110
  2. BRIVIACT [Suspect]
     Active Substance: BRIVARACETAM
     Dosage: 100 MILLIGRAM, 2X/DAY (BID)
     Dates: start: 202302
  3. FYCOMPA [Concomitant]
     Active Substance: PERAMPANEL
     Indication: Partial seizures
     Dosage: 4 MILLIGRAM
     Dates: start: 202303
  4. LAMOTRIGINE [Concomitant]
     Active Substance: LAMOTRIGINE
     Indication: Partial seizures
     Dosage: 25 MILLIGRAM
     Dates: start: 202401
  5. LAMOTRIGINE [Concomitant]
     Active Substance: LAMOTRIGINE
     Dosage: 25 MILLIGRAM, 2X/DAY (BID)
     Dates: start: 202402

REACTIONS (4)
  - Psychogenic seizure [Unknown]
  - Vaginal haemorrhage [Unknown]
  - Maternal exposure before pregnancy [Unknown]
  - Maternal exposure during pregnancy [Unknown]
